FAERS Safety Report 25701048 (Version 1)
Quarter: 2025Q3

REPORT INFORMATION
  Report Type: Spontaneous
  Country: US (occurrence: None)
  Receive Date: 20250818
  Receipt Date: 20250818
  Transmission Date: 20251020
  Serious: Yes (Hospitalization)
  Sender: FDA-CTU
  Company Number: None

PATIENT
  Age: 63 Year
  Sex: Female

DRUGS (24)
  1. REPATHA [Suspect]
     Active Substance: EVOLOCUMAB
     Indication: Hyperlipidaemia
     Dosage: FREQUENCY : EVERY OTHER WEEK;?
     Route: 058
     Dates: start: 20230302
  2. TACROLIMUS [Suspect]
     Active Substance: TACROLIMUS
     Indication: Liver transplant
     Dosage: FREQUENCY : TWICE A DAY;?
     Route: 048
     Dates: start: 20230721
  3. MYCOPHENOLIC ACID [Suspect]
     Active Substance: MYCOPHENOLIC ACID
  4. REPATHA [Concomitant]
     Active Substance: EVOLOCUMAB
  5. TACROLIMUS [Concomitant]
     Active Substance: TACROLIMUS
  6. MYCOPHENOLIC ACID [Concomitant]
     Active Substance: MYCOPHENOLIC ACID
  7. ALLOPURINOL [Concomitant]
     Active Substance: ALLOPURINOL
  8. ATROVENT [Concomitant]
     Active Substance: IPRATROPIUM BROMIDE
  9. CLOPIDOGREL [Concomitant]
     Active Substance: CLOPIDOGREL BISULFATE
  10. ESTRADIOL VAGINAL [Concomitant]
     Active Substance: ESTRADIOL
  11. FLUOXETINE [Concomitant]
     Active Substance: FLUOXETINE HYDROCHLORIDE
  12. FUROSEMIDE [Concomitant]
     Active Substance: FUROSEMIDE
  13. HUMALOG [Concomitant]
     Active Substance: INSULIN LISPRO
  14. ISOSORBIDE MONO ER [Concomitant]
  15. LEVETIRACETAM [Concomitant]
     Active Substance: LEVETIRACETAM
  16. LEVOTHYROXINE [Concomitant]
     Active Substance: LEVOTHYROXINE
  17. LEVOTHYROXINE [Concomitant]
     Active Substance: LEVOTHYROXINE
  18. HYDROCHLOROTHIAZIDE\LOSARTAN [Concomitant]
     Active Substance: HYDROCHLOROTHIAZIDE\LOSARTAN
  19. METOPROLOL SUCCINATE [Concomitant]
     Active Substance: METOPROLOL SUCCINATE
  20. MONTELUKAST [Concomitant]
     Active Substance: MONTELUKAST
  21. PANTOPRAZOLE [Concomitant]
     Active Substance: PANTOPRAZOLE
  22. PRAMIPEXOLE [Concomitant]
     Active Substance: PRAMIPEXOLE
  23. PREGABALIN [Concomitant]
     Active Substance: PREGABALIN
  24. BACTRIM DS [Suspect]
     Active Substance: SULFAMETHOXAZOLE\TRIMETHOPRIM

REACTIONS (1)
  - Urinary tract infection [None]

NARRATIVE: CASE EVENT DATE: 20250809
